FAERS Safety Report 10080786 (Version 2)
Quarter: 2015Q2

REPORT INFORMATION
  Report Type: Report from Study
  Country: US (occurrence: US)
  Receive Date: 20140416
  Receipt Date: 20150507
  Transmission Date: 20150821
  Serious: Yes (Hospitalization)
  Sender: FDA-Public Use
  Company Number: US-ROCHE-1384748

PATIENT
  Age: 50 Year
  Sex: Female

DRUGS (34)
  1. RANIBIZUMAB [Suspect]
     Active Substance: RANIBIZUMAB
     Dosage: EYE OS
     Route: 050
     Dates: start: 20130520
  2. RANIBIZUMAB [Suspect]
     Active Substance: RANIBIZUMAB
     Dosage: EYE OS
     Route: 050
     Dates: start: 20131122
  3. RANIBIZUMAB [Suspect]
     Active Substance: RANIBIZUMAB
     Dosage: EYE OS
     Route: 050
     Dates: start: 20140130
  4. RANIBIZUMAB [Suspect]
     Active Substance: RANIBIZUMAB
     Dosage: EYE OS
     Route: 050
     Dates: start: 20140515
  5. RANIBIZUMAB [Suspect]
     Active Substance: RANIBIZUMAB
     Dosage: EYE OS
     Route: 050
     Dates: start: 20141006
  6. RANIBIZUMAB [Suspect]
     Active Substance: RANIBIZUMAB
     Dosage: EYE OS
     Route: 050
     Dates: start: 20150305
  7. RANIBIZUMAB [Suspect]
     Active Substance: RANIBIZUMAB
     Dosage: EYE OS
     Route: 050
     Dates: start: 20150109
  8. VITAMIN D3 [Concomitant]
     Active Substance: CHOLECALCIFEROL
     Route: 048
  9. RANIBIZUMAB [Suspect]
     Active Substance: RANIBIZUMAB
     Indication: DIABETIC RETINAL OEDEMA
     Dosage: EYE OS
     Route: 050
     Dates: start: 20130424
  10. RANIBIZUMAB [Suspect]
     Active Substance: RANIBIZUMAB
     Dosage: EYE OS
     Route: 050
     Dates: start: 20141103
  11. METOPROLOL SUCCINATE. [Concomitant]
     Active Substance: METOPROLOL SUCCINATE
     Route: 048
  12. LANTUS [Concomitant]
     Active Substance: INSULIN GLARGINE
     Dosage: 40/UNITS
     Route: 058
  13. ALBUTEROL SULFATE. [Concomitant]
     Active Substance: ALBUTEROL SULFATE
     Route: 048
  14. OFLOXACIN. [Concomitant]
     Active Substance: OFLOXACIN
     Indication: PROPHYLAXIS
     Dosage: 0.3%/GTT-DROPS TOPICAL-OCULAR
     Route: 065
     Dates: start: 20130424
  15. RANIBIZUMAB [Suspect]
     Active Substance: RANIBIZUMAB
     Dosage: EYE OS
     Route: 050
     Dates: start: 20140605
  16. RANIBIZUMAB [Suspect]
     Active Substance: RANIBIZUMAB
     Dosage: EYE OS
     Route: 050
     Dates: start: 20150205
  17. DEPAKOTE [Concomitant]
     Active Substance: DIVALPROEX SODIUM
     Route: 048
  18. RANIBIZUMAB [Suspect]
     Active Substance: RANIBIZUMAB
     Dosage: EYE OS
     Route: 050
     Dates: start: 20130715
  19. RANIBIZUMAB [Suspect]
     Active Substance: RANIBIZUMAB
     Dosage: EYE OS
     Route: 050
     Dates: start: 20130909
  20. RANIBIZUMAB [Suspect]
     Active Substance: RANIBIZUMAB
     Dosage: EYE OS
     Route: 050
     Dates: start: 20140515
  21. BENADRYL [Concomitant]
     Active Substance: DIPHENHYDRAMINE HYDROCHLORIDE
     Route: 048
  22. RANIBIZUMAB [Suspect]
     Active Substance: RANIBIZUMAB
     Dosage: EYE OS
     Route: 050
     Dates: start: 20140109
  23. RANIBIZUMAB [Suspect]
     Active Substance: RANIBIZUMAB
     Dosage: EYE OS
     Route: 050
     Dates: start: 20140709
  24. RANIBIZUMAB [Suspect]
     Active Substance: RANIBIZUMAB
     Dosage: EYE OS
     Route: 050
     Dates: start: 20140908
  25. PRAVACHOL [Concomitant]
     Active Substance: PRAVASTATIN SODIUM
     Route: 048
  26. NOVOLOG [Concomitant]
     Active Substance: INSULIN ASPART
     Dosage: 22/UNITS
     Route: 058
  27. RANIBIZUMAB [Suspect]
     Active Substance: RANIBIZUMAB
     Dosage: EYE OS
     Route: 050
     Dates: start: 20130617
  28. RANIBIZUMAB [Suspect]
     Active Substance: RANIBIZUMAB
     Dosage: EYE OS
     Route: 050
     Dates: start: 20130819
  29. RANIBIZUMAB [Suspect]
     Active Substance: RANIBIZUMAB
     Dosage: EYE OS
     Route: 050
     Dates: start: 20131009
  30. RANIBIZUMAB [Suspect]
     Active Substance: RANIBIZUMAB
     Dosage: EYE OS
     Route: 050
     Dates: start: 20141212
  31. RANIBIZUMAB [Suspect]
     Active Substance: RANIBIZUMAB
     Dosage: EYE OS
     Route: 050
     Dates: start: 20150402
  32. COZAAR [Concomitant]
     Active Substance: LOSARTAN POTASSIUM
     Route: 048
  33. PHENERGAN [Concomitant]
     Active Substance: PROMETHAZINE HYDROCHLORIDE
     Route: 048
  34. BESIVANCE [Concomitant]
     Active Substance: BESIFLOXACIN
     Route: 065
     Dates: start: 20130807

REACTIONS (1)
  - Chest pain [Not Recovered/Not Resolved]

NARRATIVE: CASE EVENT DATE: 20140404
